FAERS Safety Report 8236472-4 (Version None)
Quarter: 2012Q1

REPORT INFORMATION
  Report Type: 
  Country: None (occurrence: None)
  Receive Date: 20120326
  Receipt Date: 20120326
  Transmission Date: 20120608
  Serious: Yes (Hospitalization)
  Sender: FDA-Public Use
  Company Number: None

PATIENT
  Age: 63 Year
  Sex: Male

DRUGS (1)
  1. INSULIN [Suspect]
     Dates: start: 20110707, end: 20120309

REACTIONS (3)
  - LOSS OF CONSCIOUSNESS [None]
  - HYPOGLYCAEMIA [None]
  - ALCOHOL USE [None]
